FAERS Safety Report 13955545 (Version 2)
Quarter: 2017Q3

REPORT INFORMATION
  Report Type: Spontaneous
  Country: PL (occurrence: PL)
  Receive Date: 20170911
  Receipt Date: 20170926
  Transmission Date: 20171128
  Serious: Yes (Hospitalization, Other)
  Sender: FDA-Public Use
  Company Number: PL-ACTELION-A-CH2017-158870

PATIENT
  Age: 41 Year
  Sex: Male

DRUGS (9)
  1. VELETRI [Suspect]
     Active Substance: EPOPROSTENOL
     Indication: PULMONARY ARTERIAL HYPERTENSION
     Dosage: 60 NG/KG, PER MIN
     Route: 042
     Dates: start: 201606
  2. ENTEROL [Concomitant]
     Dosage: 25 MG, OD
  3. SPIRONOL [Concomitant]
     Active Substance: SPIRONOLACTONE
     Dosage: 200 MG, OD
  4. NEBILET [Concomitant]
     Active Substance: NEBIVOLOL
     Dosage: 2.5 MG, BID
  5. HYDROCHLOROTHIAZIDE. [Concomitant]
     Active Substance: HYDROCHLOROTHIAZIDE
     Dosage: 6.25 MG, UNK
  6. NOLPAZA [Concomitant]
     Active Substance: PANTOPRAZOLE SODIUM
     Dosage: 20 MG, UNK
  7. KALDYUM [Concomitant]
     Active Substance: POTASSIUM CHLORIDE
     Dosage: 2 UNK, TID
  8. SILDENAFIL. [Concomitant]
     Active Substance: SILDENAFIL
     Dosage: 20 MG, TID
     Dates: start: 201603
  9. SALAZOPYRINE [Concomitant]
     Active Substance: SULFASALAZINE
     Dosage: 2 TBS, TID

REACTIONS (17)
  - Device related infection [Not Recovered/Not Resolved]
  - Oedema [Not Recovered/Not Resolved]
  - Hypotonia [Not Recovered/Not Resolved]
  - Dyspnoea [Not Recovered/Not Resolved]
  - Sepsis [Not Recovered/Not Resolved]
  - Blood culture positive [Not Recovered/Not Resolved]
  - Staphylococcus test positive [Not Recovered/Not Resolved]
  - Condition aggravated [Not Recovered/Not Resolved]
  - Ascites [Not Recovered/Not Resolved]
  - Weight increased [Not Recovered/Not Resolved]
  - Pyrexia [Not Recovered/Not Resolved]
  - Oedema peripheral [Not Recovered/Not Resolved]
  - Catheter removal [Unknown]
  - Septic shock [Not Recovered/Not Resolved]
  - Endocarditis [Not Recovered/Not Resolved]
  - Right ventricular failure [Not Recovered/Not Resolved]
  - Diarrhoea [Unknown]

NARRATIVE: CASE EVENT DATE: 201707
